FAERS Safety Report 5657322-6 (Version None)
Quarter: 2008Q1

REPORT INFORMATION
  Report Type: 
  Country: None (occurrence: None)
  Receive Date: 20080310
  Receipt Date: 20080303
  Transmission Date: 20080703
  Serious: Yes (Other)
  Sender: FDA-Public Use
  Company Number: US-PFIZER INC-2007030497

PATIENT
  Sex: Male
  Weight: 117.9 kg

DRUGS (2)
  1. CELEBREX [Suspect]
     Route: 048
     Dates: start: 20020227, end: 20020428
  2. BEXTRA [Suspect]
     Route: 048
     Dates: start: 20021112, end: 20021212

REACTIONS (1)
  - THROMBOSIS [None]
